FAERS Safety Report 5768108-6 (Version None)
Quarter: 2008Q2

REPORT INFORMATION
  Report Type: 
  Country: None (occurrence: None)
  Receive Date: 20080606
  Receipt Date: 20080526
  Transmission Date: 20081010
  Serious: Yes (Life-Threatening, Hospitalization)
  Sender: FDA-Public Use
  Company Number: 6043130

PATIENT
  Age: 72 Year
  Sex: Male

DRUGS (10)
  1. BISOPROLOL FUMARATE [Suspect]
     Indication: DRUG USE FOR UNKNOWN INDICATION
     Dosage: ORAL
     Route: 048
     Dates: end: 20080426
  2. METFORMIN HCL [Suspect]
     Indication: DRUG USE FOR UNKNOWN INDICATION
     Dosage: ORAL
     Route: 048
     Dates: end: 20080426
  3. COAPROVEL (TABLET) (HYDROCHLOROTHIAZIDE, IRBESARTAN) [Suspect]
     Indication: DRUG USE FOR UNKNOWN INDICATION
     Dosage: ORAL
     Route: 048
     Dates: end: 20080426
  4. KARDEGIC (POWDER FOR ORAL SOLUTION) (ACETYLSALICYLATE LYSINE) [Suspect]
     Dosage: ORAL
     Route: 048
     Dates: end: 20080426
  5. CRESTOR [Suspect]
     Indication: DRUG USE FOR UNKNOWN INDICATION
     Dosage: ORAL
     Route: 048
  6. AMARYL [Suspect]
     Indication: DRUG USE FOR UNKNOWN INDICATION
     Dosage: ORAL
     Route: 048
     Dates: end: 20080426
  7. ESOMEPRAZOLE MAGNESIUM [Suspect]
     Indication: DRUG USE FOR UNKNOWN INDICATION
     Dosage: ORAL
     Route: 048
     Dates: end: 20080426
  8. DAFALGAN (CACHET) (PARACETAMOL) [Suspect]
     Indication: DRUG USE FOR UNKNOWN INDICATION
     Dosage: ORAL
     Route: 048
     Dates: end: 20080426
  9. XATRAL (TABLET) (ALFUZOSIN) [Suspect]
     Indication: DRUG USE FOR UNKNOWN INDICATION
     Dosage: ORAL
     Route: 048
     Dates: end: 20080426
  10. NOCTRAN (TABLET) (ACEPROMAZINE, ACEPROMAZINE, CLORAZEPATE DIPOTASSIUM) [Suspect]
     Indication: DRUG USE FOR UNKNOWN INDICATION
     Dosage: ORAL
     Route: 048
     Dates: end: 20080426

REACTIONS (11)
  - ATRIOVENTRICULAR BLOCK COMPLETE [None]
  - BLOOD PRESSURE FLUCTUATION [None]
  - BRADYCARDIA [None]
  - CONFUSIONAL STATE [None]
  - DIARRHOEA [None]
  - ELECTROCARDIOGRAM QRS COMPLEX PROLONGED [None]
  - HYPERKALAEMIA [None]
  - HYPOTENSION [None]
  - METABOLIC ACIDOSIS [None]
  - PULMONARY CONGESTION [None]
  - RENAL FAILURE [None]
